FAERS Safety Report 23306959 (Version 3)
Quarter: 2024Q1

REPORT INFORMATION
  Report Type: Spontaneous
  Country: IL (occurrence: IL)
  Receive Date: 20231218
  Receipt Date: 20240124
  Transmission Date: 20240410
  Serious: Yes (Hospitalization)
  Sender: FDA-Public Use
  Company Number: IL-BAYER-2023A180247

PATIENT
  Age: 59 Year
  Sex: Female

DRUGS (1)
  1. EYLEA [Suspect]
     Active Substance: AFLIBERCEPT
     Indication: Product used for unknown indication
     Dosage: INJECTION IN BOTH EYES, SOLUTION FOR INJECTION IN PRE-FILLED SYRINGE, STRENGTH: 40 MG/ML
     Route: 031
     Dates: start: 20231005, end: 20231005

REACTIONS (5)
  - Blindness unilateral [Unknown]
  - Bacterial endophthalmitis [Unknown]
  - Vitritis [Recovered/Resolved]
  - Hypopyon [Recovered/Resolved]
  - Eye pain [Recovering/Resolving]

NARRATIVE: CASE EVENT DATE: 20231010
